FAERS Safety Report 18489758 (Version 3)
Quarter: 2020Q4

REPORT INFORMATION
  Report Type: Spontaneous
  Country: US (occurrence: US)
  Receive Date: 20201111
  Receipt Date: 20201202
  Transmission Date: 20210114
  Serious: Yes (Other)
  Sender: FDA-Public Use
  Company Number: US-PFIZER INC-2020444881

PATIENT

DRUGS (2)
  1. HYALURONIDASE [Suspect]
     Active Substance: HYALURONIDASE
     Dosage: UNK, 15 U/ML
  2. EPINEPHRINE/LIDOCAINE HYDROCHLORIDE [Suspect]
     Active Substance: EPINEPHRINE\LIDOCAINE HYDROCHLORIDE
     Indication: LOCAL ANAESTHESIA
     Dosage: 1.5 %
     Route: 031

REACTIONS (6)
  - Incorrect route of product administration [Unknown]
  - Exposure via eye contact [Unknown]
  - Visual acuity reduced [Not Recovered/Not Resolved]
  - Retinal tear [Not Recovered/Not Resolved]
  - Visual field defect [Not Recovered/Not Resolved]
  - Haemorrhage [Unknown]
